FAERS Safety Report 9793269 (Version 2)
Quarter: 2014Q1

REPORT INFORMATION
  Report Type: Spontaneous
  Country: DE (occurrence: None)
  Receive Date: 20131230
  Receipt Date: 20140328
  Transmission Date: 20141002
  Serious: Yes (Life-Threatening, Hospitalization)
  Sender: FDA-Public Use
  Company Number: SP07349

PATIENT
  Age: 65 Year
  Sex: Female

DRUGS (3)
  1. MOVIPREP [Suspect]
     Indication: BOWEL PREPARATION
     Route: 048
     Dates: start: 20131126, end: 20131127
  2. ABILIFY [Concomitant]
  3. EUTHYROX [Concomitant]

REACTIONS (4)
  - Hyponatraemia [None]
  - Status epilepticus [None]
  - Apparent life threatening event [None]
  - Neuroleptic malignant syndrome [None]
